FAERS Safety Report 4630237-8 (Version None)
Quarter: 2005Q2

REPORT INFORMATION
  Report Type: 
  Country: None (occurrence: None)
  Receive Date: 20050408
  Receipt Date: 20041126
  Transmission Date: 20051028
  Serious: Yes (Death, Hospitalization)
  Sender: FDA-Public Use
  Company Number: PHHO2004FR16932

PATIENT
  Age: 60 Year
  Sex: Male
  Weight: 68 kg

DRUGS (2)
  1. NEORAL [Suspect]
     Indication: LIVER TRANSPLANT
     Dosage: 300MG DAILY
     Route: 048
     Dates: start: 20040505
  2. CORTICOSTEROIDS [Concomitant]

REACTIONS (14)
  - CHEMOTHERAPY [None]
  - DEATH [None]
  - DYSPHAGIA [None]
  - DYSPNOEA [None]
  - GENERAL PHYSICAL HEALTH DETERIORATION [None]
  - HYPOXIA [None]
  - INFARCTION [None]
  - MENTAL DISORDER [None]
  - NERVOUS SYSTEM DISORDER [None]
  - OROPHARYNGEAL CANCER STAGE UNSPECIFIED [None]
  - PAIN [None]
  - PLEURAL EFFUSION [None]
  - PLEURAL OPERATION [None]
  - RADIOTHERAPY [None]
